FAERS Safety Report 12866491 (Version 9)
Quarter: 2017Q2

REPORT INFORMATION
  Report Type: Spontaneous
  Country: US (occurrence: US)
  Receive Date: 20161020
  Receipt Date: 20170505
  Transmission Date: 20170830
  Serious: Yes (Other)
  Sender: FDA-Public Use
  Company Number: US-SA-2016SA109592

PATIENT
  Age: 41 Year
  Sex: Female
  Weight: 51.25 kg

DRUGS (15)
  1. AUBAGIO [Suspect]
     Active Substance: TERIFLUNOMIDE
     Indication: MULTIPLE SCLEROSIS
     Route: 048
     Dates: start: 20160503
  2. AUBAGIO [Suspect]
     Active Substance: TERIFLUNOMIDE
     Indication: MULTIPLE SCLEROSIS
     Route: 048
  3. RESTORIL [Concomitant]
     Active Substance: TEMAZEPAM
  4. AUBAGIO [Suspect]
     Active Substance: TERIFLUNOMIDE
     Indication: MULTIPLE SCLEROSIS
     Route: 048
  5. AUBAGIO [Suspect]
     Active Substance: TERIFLUNOMIDE
     Indication: MULTIPLE SCLEROSIS
     Route: 048
     Dates: start: 2016
  6. AUBAGIO [Suspect]
     Active Substance: TERIFLUNOMIDE
     Indication: MULTIPLE SCLEROSIS
     Route: 048
  7. AUBAGIO [Suspect]
     Active Substance: TERIFLUNOMIDE
     Indication: MULTIPLE SCLEROSIS
     Route: 048
     Dates: start: 20160503
  8. SEROQUEL [Concomitant]
     Active Substance: QUETIAPINE FUMARATE
  9. EFFEXOR [Concomitant]
     Active Substance: VENLAFAXINE HYDROCHLORIDE
  10. AUBAGIO [Suspect]
     Active Substance: TERIFLUNOMIDE
     Indication: MULTIPLE SCLEROSIS
     Route: 048
  11. AUBAGIO [Suspect]
     Active Substance: TERIFLUNOMIDE
     Indication: MULTIPLE SCLEROSIS
     Route: 048
  12. AUBAGIO [Suspect]
     Active Substance: TERIFLUNOMIDE
     Indication: MULTIPLE SCLEROSIS
     Route: 048
     Dates: start: 2016
  13. LAMICTAL [Concomitant]
     Active Substance: LAMOTRIGINE
  14. AUBAGIO [Suspect]
     Active Substance: TERIFLUNOMIDE
     Indication: MULTIPLE SCLEROSIS
     Route: 048
  15. CLONAZEPAM. [Concomitant]
     Active Substance: CLONAZEPAM

REACTIONS (14)
  - Fatigue [Unknown]
  - Vulvovaginal mycotic infection [Unknown]
  - Burning sensation [Unknown]
  - Cellulitis [Unknown]
  - Fall [Unknown]
  - Dizziness [Unknown]
  - Insomnia [Unknown]
  - Urinary tract infection [Unknown]
  - Photosensitivity reaction [Unknown]
  - Off label use [Unknown]
  - Poor quality sleep [Unknown]
  - Bacterial infection [Unknown]
  - Decreased appetite [Unknown]
  - Erythema [Unknown]

NARRATIVE: CASE EVENT DATE: 20160503
